FAERS Safety Report 10172246 (Version 1)
Quarter: 2014Q2

REPORT INFORMATION
  Report Type: Spontaneous
  Country: ES (occurrence: ES)
  Receive Date: 20140515
  Receipt Date: 20140515
  Transmission Date: 20141212
  Serious: Yes (Hospitalization, Other)
  Sender: FDA-Public Use
  Company Number: ES-PFIZER INC-2014131276

PATIENT
  Age: 68 Year
  Sex: Male

DRUGS (5)
  1. LYRICA [Suspect]
     Dosage: UNK
     Route: 048
     Dates: start: 20130620, end: 20130626
  2. TROMALYT [Suspect]
     Indication: CEREBROVASCULAR ACCIDENT
     Dosage: 300 MG, 1X/DAY
     Route: 048
     Dates: start: 20130221, end: 20130626
  3. ATORVASTATIN [Concomitant]
     Indication: DYSLIPIDAEMIA
     Dosage: 80 MG, 1X/DAY
     Route: 048
     Dates: start: 2010
  4. PANTOPRAZOLE [Concomitant]
     Indication: PROPHYLAXIS AGAINST GASTROINTESTINAL ULCER
     Dosage: 40 MG, 1X/DAY
     Route: 048
     Dates: start: 2010
  5. SEROQUEL [Concomitant]
     Indication: DEPRESSION
     Dosage: 50 MG, 1X/DAY
     Route: 048
     Dates: start: 20121210, end: 20130626

REACTIONS (7)
  - Anaemia [Recovering/Resolving]
  - Subdural haematoma [Recovering/Resolving]
  - Hemiparesis [Recovering/Resolving]
  - Aphasia [Recovering/Resolving]
  - Cerebral infarction [Recovering/Resolving]
  - Carotid artery stenosis [Recovering/Resolving]
  - Cyst [Recovering/Resolving]
